FAERS Safety Report 8840835 (Version 1)
Quarter: 2012Q4

REPORT INFORMATION
  Report Type: 
  Country: CZ (occurrence: CZ)
  Receive Date: 20121015
  Receipt Date: 20121015
  Transmission Date: 20130627
  Serious: Yes (Death, Other)
  Sender: FDA-Public Use
  Company Number: CZ-ROCHE-551145

PATIENT

DRUGS (4)
  1. MYCOPHENOLATE MOFETIL [Suspect]
     Indication: PROPHYLAXIS AGAINST TRANSPLANT REJECTION
     Dosage: UP TO 14 DAYS
     Route: 048
  2. MYCOPHENOLATE MOFETIL [Suspect]
     Route: 048
  3. TACROLIMUS [Suspect]
     Indication: PROPHYLAXIS AGAINST TRANSPLANT REJECTION
     Route: 065
  4. METHYLPREDNISOLONE [Suspect]
     Indication: PROPHYLAXIS AGAINST TRANSPLANT REJECTION
     Dosage: 500 MG OR LESS, PERIOPERATIVELY
     Route: 042

REACTIONS (8)
  - T-cell lymphoma [Fatal]
  - Hepatic failure [Fatal]
  - Septic shock [Fatal]
  - Cytomegalovirus infection [Unknown]
  - Transplant rejection [Unknown]
  - Graft loss [Unknown]
  - Diabetes mellitus [Unknown]
  - Post transplant lymphoproliferative disorder [Unknown]
